FAERS Safety Report 22057514 (Version 1)
Quarter: 2023Q1

REPORT INFORMATION
  Report Type: Report from Study
  Country: EC (occurrence: None)
  Receive Date: 20230303
  Receipt Date: 20230303
  Transmission Date: 20230418
  Serious: Yes (Other)
  Sender: FDA-Public Use
  Company Number: EC-Merck Healthcare KGaA-9386185

PATIENT
  Age: 17 Year
  Sex: Male

DRUGS (1)
  1. SAIZEN [Suspect]
     Active Substance: SOMATROPIN
     Indication: Product used for unknown indication
     Dosage: 2.1 (UNIT UNSPECIFIED)
     Route: 058
     Dates: start: 20220211

REACTIONS (2)
  - Neoplasm [Unknown]
  - Oedema [Unknown]

NARRATIVE: CASE EVENT DATE: 20220915
